FAERS Safety Report 8998093 (Version 3)
Quarter: 2013Q1

REPORT INFORMATION
  Report Type: Spontaneous
  Country: JP (occurrence: JP)
  Receive Date: 20130104
  Receipt Date: 20130131
  Transmission Date: 20140127
  Serious: Yes (Other)
  Sender: FDA-Public Use
  Company Number: JP-VERTEX PHARMACEUTICALS INC.-2013-000150

PATIENT
  Age: 56 Year
  Sex: Female

DRUGS (6)
  1. TELAVIC [Suspect]
     Indication: CHRONIC HEPATITIS C
     Dosage: 1500 MG, QD
     Route: 048
     Dates: start: 20121122, end: 20121227
  2. REBETOL [Suspect]
     Indication: CHRONIC HEPATITIS C
     Dosage: 400 MG, QD
     Route: 048
     Dates: start: 20121122, end: 20121227
  3. PEGINTRON [Suspect]
     Indication: CHRONIC HEPATITIS C
     Dosage: 1.5 ?G/KG, QW
     Route: 058
     Dates: start: 20121122, end: 20121227
  4. LOXOPROFEN [Concomitant]
     Dosage: 120 MG, QD
     Route: 048
     Dates: start: 20121122, end: 20121227
  5. FAMOTIDINE DCI [Concomitant]
     Dosage: 40 MG, QD
     Route: 048
     Dates: start: 20121122, end: 20121227
  6. RINDERON VG [Concomitant]
     Dosage: UNK, PRN
     Route: 061
     Dates: start: 20121220, end: 20121227

REACTIONS (2)
  - Generalised erythema [Recovered/Resolved]
  - Injection site swelling [Recovered/Resolved]
